FAERS Safety Report 19173267 (Version 1)
Quarter: 2021Q2

REPORT INFORMATION
  Report Type: Spontaneous
  Country: US (occurrence: US)
  Receive Date: 20210423
  Receipt Date: 20210423
  Transmission Date: 20210717
  Serious: Yes (Other)
  Sender: FDA-Public Use
  Company Number: US-BEH-2021130809

PATIENT
  Age: 58 Year
  Sex: Female

DRUGS (2)
  1. PRIVIGEN [Suspect]
     Active Substance: HUMAN IMMUNOGLOBULIN G
     Dosage: SMALL DOSE ADMINISTERED OVER 5 DAYS, QMT
     Route: 042
     Dates: start: 20210405
  2. ZOFRAN [Concomitant]
     Active Substance: ONDANSETRON HYDROCHLORIDE

REACTIONS (9)
  - Influenza like illness [Unknown]
  - Rash macular [Unknown]
  - Nausea [Unknown]
  - Constipation [Unknown]
  - Contusion [Recovering/Resolving]
  - Fatigue [Unknown]
  - Thrombosis [Unknown]
  - Dizziness [Unknown]
  - Epistaxis [Unknown]

NARRATIVE: CASE EVENT DATE: 202104
